FAERS Safety Report 6496704-X (Version None)
Quarter: 2009Q4

REPORT INFORMATION
  Report Type: 
  Country: None (occurrence: None)
  Receive Date: 20091211
  Receipt Date: 20091125
  Transmission Date: 20100525
  Serious: Yes (Other)
  Sender: FDA-Public Use
  Company Number: AVE_01169_2009

PATIENT
  Sex: Female
  Weight: 56.6996 kg

DRUGS (13)
  1. CLONIDINE [Suspect]
     Indication: HYPERTENSION
     Dosage: SEE IMAGE
     Route: 061
     Dates: start: 20091001, end: 20090101
  2. LITHIUM [Concomitant]
  3. ADVIL LIQUI-GELS [Concomitant]
  4. HYDROXYZINE [Concomitant]
  5. ENABLEX /01760401/ [Concomitant]
  6. PROPOXY HCL [Concomitant]
  7. GEODON /01487002/ [Concomitant]
  8. ZYPREXA [Concomitant]
  9. DARVOCET /00220901/ [Concomitant]
  10. TYLENOL (CAPLET) [Concomitant]
  11. VAGIFEM [Concomitant]
  12. LAMICTAL [Concomitant]
  13. CATAPRES-TTS-1 [Concomitant]

REACTIONS (7)
  - BLOOD PRESSURE INADEQUATELY CONTROLLED [None]
  - BLOOD PRESSURE INCREASED [None]
  - CONFUSIONAL STATE [None]
  - DRUG INEFFECTIVE [None]
  - HEADACHE [None]
  - PRODUCT QUALITY ISSUE [None]
  - ROAD TRAFFIC ACCIDENT [None]
